FAERS Safety Report 20572306 (Version 1)
Quarter: 2022Q1

REPORT INFORMATION
  Report Type: Spontaneous
  Country: US (occurrence: US)
  Receive Date: 20220309
  Receipt Date: 20220309
  Transmission Date: 20220424
  Serious: No
  Sender: FDA-Public Use
  Company Number: US-BAYER-2022A033173

PATIENT
  Age: 60 Year
  Sex: Female

DRUGS (3)
  1. SORAFENIB [Suspect]
     Active Substance: SORAFENIB
     Indication: Hepatocellular carcinoma
     Dosage: UNK
  2. NIVOLUMAB [Concomitant]
     Active Substance: NIVOLUMAB
     Indication: Hepatocellular carcinoma
     Dosage: 240 MG EVERY 2 WEEKS THE FIRST MONTH
  3. NIVOLUMAB [Concomitant]
     Active Substance: NIVOLUMAB
     Indication: Hepatocellular carcinoma
     Dosage: 480 MG EVERY 4 WEEKS FOR 15 MONTHS

REACTIONS (1)
  - Drug intolerance [None]
